FAERS Safety Report 8026535-0 (Version None)
Quarter: 2012Q1

REPORT INFORMATION
  Report Type: 
  Country: None (occurrence: None)
  Receive Date: 20120106
  Receipt Date: 20111230
  Transmission Date: 20120608
  Serious: Yes (Hospitalization, Other)
  Sender: FDA-Public Use
  Company Number: US-BRISTOL-MYERS SQUIBB COMPANY-16307902

PATIENT
  Age: 70 Year
  Sex: Male

DRUGS (1)
  1. YERVOY [Suspect]
     Indication: METASTATIC MALIGNANT MELANOMA
     Dosage: RECEIVED ONE DOSE OF IPILIMUMAB. ROUTE:IVPB (I.V. PIGGYBACK) LOT#917822 MAY 14 1 DOSAGE FORM
     Route: 042
     Dates: start: 20111205

REACTIONS (4)
  - IDIOPATHIC THROMBOCYTOPENIC PURPURA [None]
  - CARDIAC ENZYMES INCREASED [None]
  - CHEST PAIN [None]
  - DYSPNOEA [None]
